FAERS Safety Report 7920911-X (Version None)
Quarter: 2011Q4

REPORT INFORMATION
  Report Type: 
  Country: None (occurrence: None)
  Receive Date: 20111117
  Receipt Date: 20111007
  Transmission Date: 20120403
  Serious: No
  Sender: FDA-Public Use
  Company Number: US-GLAXOSMITHKLINE-A0948238A

PATIENT
  Age: 75 Year
  Sex: Female

DRUGS (5)
  1. VOTRIENT [Suspect]
     Indication: RENAL CELL CARCINOMA
     Dosage: 800MG TWICE PER DAY
     Route: 048
  2. KLONOPIN [Concomitant]
  3. LEVOTHYROXINE SODIUM [Concomitant]
  4. DILTIAZEM HCL [Concomitant]
  5. ALBUTEROL INHALER [Concomitant]

REACTIONS (2)
  - DYSPNOEA [None]
  - GASTROINTESTINAL TRACT IRRITATION [None]
